FAERS Safety Report 4932664-8 (Version None)
Quarter: 2006Q1

REPORT INFORMATION
  Report Type: 
  Country: None (occurrence: None)
  Receive Date: 20060301
  Receipt Date: 20060217
  Transmission Date: 20060701
  Serious: Yes (Hospitalization, Other)
  Sender: FDA-Public Use
  Company Number: 200512722BWH

PATIENT
  Age: 54 Year
  Sex: Female

DRUGS (5)
  1. SORAFENIB [Suspect]
     Indication: METASTATIC MALIGNANT MELANOMA
     Dosage: 400 MG, BID, ORAL
     Route: 048
     Dates: start: 20050921
  2. TEMOZOLOMIDE [Suspect]
     Dates: start: 20050928
  3. ANTIBIOTICS [Concomitant]
  4. LOVENOX [Concomitant]
  5. COUMADIN [Concomitant]

REACTIONS (4)
  - ESCHERICHIA INFECTION [None]
  - IMPAIRED HEALING [None]
  - POSTOPERATIVE WOUND INFECTION [None]
  - STENT REMOVAL [None]
